FAERS Safety Report 16607597 (Version 1)
Quarter: 2019Q3

REPORT INFORMATION
  Report Type: Spontaneous
  Country: TR (occurrence: TR)
  Receive Date: 20190722
  Receipt Date: 20190722
  Transmission Date: 20191004
  Serious: Yes (Death, Hospitalization, Other)
  Sender: FDA-Public Use
  Company Number: TR-SA-2019SA191251

PATIENT
  Age: 71 Year
  Sex: Male

DRUGS (2)
  1. BCG FOR IMMUNOTHERAPY [Suspect]
     Active Substance: BACILLUS CALMETTE-GUERIN ANTIGEN, UNSPECIFIED SUBSTRAIN
     Indication: BLADDER CANCER
     Dosage: UNK
     Route: 043
  2. BCG FOR IMMUNOTHERAPY [Suspect]
     Active Substance: BACILLUS CALMETTE-GUERIN ANTIGEN, UNSPECIFIED SUBSTRAIN
     Dosage: UNK
     Route: 043

REACTIONS (19)
  - Respiratory failure [Fatal]
  - Patient uncooperative [Unknown]
  - Rash maculo-papular [Unknown]
  - Ocular icterus [Unknown]
  - Fatigue [Unknown]
  - Loss of consciousness [Fatal]
  - Pulmonary embolism [Unknown]
  - General physical condition abnormal [Unknown]
  - Oxygen consumption increased [Fatal]
  - Altered state of consciousness [Unknown]
  - Pyrexia [Unknown]
  - Sepsis [Unknown]
  - Hepatosplenomegaly [Unknown]
  - Oedema peripheral [Unknown]
  - Disseminated Bacillus Calmette-Guerin infection [Unknown]
  - Breath sounds abnormal [Unknown]
  - Tachypnoea [Unknown]
  - Disseminated intravascular coagulation [Unknown]
  - Urine output decreased [Unknown]
